FAERS Safety Report 25756377 (Version 1)
Quarter: 2025Q3

REPORT INFORMATION
  Report Type: Spontaneous
  Country: CN (occurrence: CN)
  Receive Date: 20250903
  Receipt Date: 20250903
  Transmission Date: 20251021
  Serious: Yes (Other)
  Sender: MERCK SHARP & DOHME LLC
  Company Number: CN-009507513-2323417

PATIENT
  Age: 88 Year
  Sex: Male

DRUGS (2)
  1. INVANZ [Suspect]
     Active Substance: ERTAPENEM SODIUM
     Indication: Pneumonia
     Route: 041
     Dates: start: 20250811, end: 20250815
  2. Baclofen tablets (Lioresal) [Concomitant]
     Indication: Hiccups
     Route: 048
     Dates: start: 20250811, end: 20250818

REACTIONS (4)
  - Cerebral ischaemia [Unknown]
  - Delirium [Recovering/Resolving]
  - Agitation [Recovering/Resolving]
  - Hallucination [Recovering/Resolving]

NARRATIVE: CASE EVENT DATE: 20250814
